FAERS Safety Report 5667547-1 (Version None)
Quarter: 2008Q1

REPORT INFORMATION
  Report Type: 
  Country: None (occurrence: None)
  Receive Date: 20080315
  Receipt Date: 20080125
  Transmission Date: 20080703
  Serious: No
  Sender: FDA-Public Use
  Company Number: US-ABBOTT-08P-163-0435514-00

PATIENT
  Sex: Male
  Weight: 113.6 kg

DRUGS (3)
  1. HUMIRA [Suspect]
     Indication: RHEUMATOID ARTHRITIS
     Route: 058
     Dates: start: 20080121
  2. METHOTREXATE [Concomitant]
     Indication: DRUG USE FOR UNKNOWN INDICATION
  3. PREDNISONE [Concomitant]
     Indication: DRUG USE FOR UNKNOWN INDICATION

REACTIONS (7)
  - BLADDER DISCOMFORT [None]
  - COUGH [None]
  - DYSURIA [None]
  - INFLUENZA LIKE ILLNESS [None]
  - RHINORRHOEA [None]
  - SENSATION OF PRESSURE [None]
  - SNEEZING [None]
